FAERS Safety Report 21411441 (Version 1)
Quarter: 2022Q4

REPORT INFORMATION
  Report Type: Spontaneous
  Country: US (occurrence: US)
  Receive Date: 20221005
  Receipt Date: 20221005
  Transmission Date: 20230113
  Serious: No
  Sender: FDA-Public Use
  Company Number: US-PFIZER INC-PV202200075023

PATIENT

DRUGS (2)
  1. XELJANZ [Interacting]
     Active Substance: TOFACITINIB CITRATE
     Dosage: UNK
  2. ENTYVIO [Interacting]
     Active Substance: VEDOLIZUMAB
     Dosage: UNK

REACTIONS (1)
  - Drug interaction [Unknown]
